FAERS Safety Report 24303150 (Version 1)
Quarter: 2024Q3

REPORT INFORMATION
  Report Type: Spontaneous
  Country: US (occurrence: US)
  Receive Date: 20240910
  Receipt Date: 20240910
  Transmission Date: 20241017
  Serious: Yes (Other)
  Sender: AMGEN
  Company Number: US-AMGEN-USASP2024178545

PATIENT

DRUGS (3)
  1. PREDNISONE [Suspect]
     Active Substance: PREDNISONE
     Indication: Immunosuppression
     Dosage: UNK
     Route: 065
  2. TACROLIMUS [Concomitant]
     Active Substance: TACROLIMUS
     Indication: Immunosuppression
     Dosage: UNK
     Route: 065
  3. MYCOPHENOLATE MOFETIL [Concomitant]
     Active Substance: MYCOPHENOLATE MOFETIL
     Indication: Immunosuppression
     Dosage: UNK
     Route: 065

REACTIONS (13)
  - Renal transplant failure [Unknown]
  - Renal vasculitis [Unknown]
  - Transplant rejection [Unknown]
  - Chronic allograft nephropathy [Unknown]
  - Tubulointerstitial nephritis [Unknown]
  - Renal arteritis [Unknown]
  - Glomerulonephritis [Unknown]
  - Kidney fibrosis [Unknown]
  - Renal tubular atrophy [Unknown]
  - Vascular hyalinosis [Unknown]
  - Capillaritis [Unknown]
  - Vascular wall hypertrophy [Unknown]
  - Vascular wall hypertrophy [Unknown]
